FAERS Safety Report 20494953 (Version 2)
Quarter: 2023Q1

REPORT INFORMATION
  Report Type: Report from Study
  Country: US (occurrence: US)
  Receive Date: 20220221
  Receipt Date: 20230308
  Transmission Date: 20230418
  Serious: No
  Sender: FDA-Public Use
  Company Number: US-MYLANLABS-2022M1012541

PATIENT
  Sex: Female

DRUGS (1)
  1. PHENYTOIN [Suspect]
     Active Substance: PHENYTOIN
     Indication: Seizure
     Dosage: UNK
     Route: 065

REACTIONS (1)
  - Drug intolerance [Unknown]
